FAERS Safety Report 8608034 (Version 2)
Quarter: 2013Q3

REPORT INFORMATION
  Report Type: Spontaneous
  Country: US (occurrence: US)
  Receive Date: 20120611
  Receipt Date: 20130702
  Transmission Date: 20140515
  Serious: Yes (Disabling, Other)
  Sender: FDA-Public Use
  Company Number: US-ASTRAZENECA-2012SE35470

PATIENT
  Age: 447 Month
  Sex: Female

DRUGS (6)
  1. NEXIUM [Suspect]
     Indication: GASTRIC DISORDER
     Dosage: TWICE A DAY
     Route: 048
  2. NEXIUM [Suspect]
     Indication: EROSIVE OESOPHAGITIS
     Dosage: TWICE A DAY
     Route: 048
  3. PROTONIX [Concomitant]
  4. PREVACID [Concomitant]
  5. ZANTAC [Concomitant]
  6. VITAMIN D3 [Concomitant]

REACTIONS (8)
  - Ankle fracture [Unknown]
  - Femur fracture [Unknown]
  - Foot fracture [Unknown]
  - Limb injury [Unknown]
  - Osteomyelitis [Unknown]
  - Osteoporosis [Unknown]
  - Arthritis [Unknown]
  - Vitamin D deficiency [Unknown]
